FAERS Safety Report 18154418 (Version 3)
Quarter: 2020Q3

REPORT INFORMATION
  Report Type: Spontaneous
  Country: US (occurrence: US)
  Receive Date: 20200817
  Receipt Date: 20200818
  Transmission Date: 20201103
  Serious: Yes (Death, Hospitalization)
  Sender: FDA-Public Use
  Company Number: US-JNJFOC-20200820035

PATIENT
  Sex: Female

DRUGS (1)
  1. PARACETAMOL [Suspect]
     Active Substance: ACETAMINOPHEN
     Indication: PAIN
     Route: 065

REACTIONS (18)
  - Foetal death [Fatal]
  - Hypoglycaemia [Fatal]
  - Overdose [Fatal]
  - Renal failure [Fatal]
  - Exposure during pregnancy [Fatal]
  - Pre-eclampsia [Fatal]
  - Platelet count decreased [Fatal]
  - Eclampsia [Fatal]
  - Leukocytosis [Fatal]
  - Ammonia increased [Fatal]
  - Haemolysis [Fatal]
  - Toxicity to various agents [Fatal]
  - Accidental overdose [Fatal]
  - Acute hepatic failure [Fatal]
  - Completed suicide [Fatal]
  - Ascites [Fatal]
  - Encephalopathy [Fatal]
  - Hepatic steatosis [Fatal]
